FAERS Safety Report 6433017-6 (Version None)
Quarter: 2009Q4

REPORT INFORMATION
  Report Type: 
  Country: None (occurrence: None)
  Receive Date: 20091109
  Receipt Date: 20091028
  Transmission Date: 20100525
  Serious: Yes (Hospitalization)
  Sender: FDA-Public Use
  Company Number: FR-ELI_LILLY_AND_COMPANY-FR200910007486

PATIENT
  Age: 80 Year
  Sex: Male

DRUGS (3)
  1. FORTEO [Suspect]
     Indication: OSTEOPOROSIS
     Dosage: 20 UG, DAILY (1/D)
     Dates: start: 20091016
  2. PREVISCAN [Concomitant]
     Dosage: UNK, UNKNOWN
     Dates: start: 20050101
  3. ART 50 [Concomitant]
     Dosage: UNK, UNKNOWN

REACTIONS (1)
  - URINARY RETENTION [None]
